FAERS Safety Report 7243443-3 (Version None)
Quarter: 2010Q4

REPORT INFORMATION
  Report Type: 
  Country: None (occurrence: None)
  Receive Date: 20101130
  Receipt Date: 20091006
  Transmission Date: 20110411
  Serious: Yes (Life-Threatening)
  Sender: FDA-Public Use
  Company Number: 2009SP029036

PATIENT
  Age: 31 Year
  Sex: Female

DRUGS (2)
  1. NUVARING [Suspect]
     Indication: PRODUCT USED FOR UNKNOWN INDICATION
     Dosage: QM;VAG
     Route: 067
     Dates: start: 20080422, end: 20090731
  2. BOTOX [Concomitant]

REACTIONS (1)
  - DEEP VEIN THROMBOSIS [None]
